FAERS Safety Report 15859866 (Version 1)
Quarter: 2019Q1

REPORT INFORMATION
  Report Type: Spontaneous
  Country: IT (occurrence: IT)
  Receive Date: 20190123
  Receipt Date: 20190123
  Transmission Date: 20190417
  Serious: Yes (Other)
  Sender: FDA-Public Use
  Company Number: IT-ELI_LILLY_AND_COMPANY-IT201901006556

PATIENT
  Age: 7 Year
  Sex: Female
  Weight: 18 kg

DRUGS (1)
  1. HUMATROPE [Suspect]
     Active Substance: SOMATROPIN
     Indication: BODY HEIGHT BELOW NORMAL
     Dosage: 4.2 MG, WEEKLY (1/W)
     Route: 058
     Dates: start: 20180701

REACTIONS (3)
  - Musculoskeletal disorder [Unknown]
  - Underdose [Unknown]
  - Perthes disease [Not Recovered/Not Resolved]

NARRATIVE: CASE EVENT DATE: 2018
